FAERS Safety Report 8322809-4 (Version None)
Quarter: 2012Q2

REPORT INFORMATION
  Report Type: 
  Country: None (occurrence: None)
  Receive Date: 20120430
  Receipt Date: 20120422
  Transmission Date: 20120825
  Serious: Yes (Other)
  Sender: FDA-Public Use
  Company Number: US-BAYER-2012-039411

PATIENT
  Age: 59 Year
  Sex: Female

DRUGS (1)
  1. NAPROXEN SODIUM [Suspect]
     Indication: PAIN IN EXTREMITY
     Dosage: 2 DF, UNK
     Route: 048
     Dates: start: 20120421

REACTIONS (1)
  - AMNESIA [None]
